FAERS Safety Report 16950943 (Version 3)
Quarter: 2020Q1

REPORT INFORMATION
  Report Type: Spontaneous
  Country: DE (occurrence: DE)
  Receive Date: 20191023
  Receipt Date: 20200112
  Transmission Date: 20200409
  Serious: Yes (Other)
  Sender: FDA-Public Use
  Company Number: DE-DRREDDYS-GER/GER/19/0115322

PATIENT
  Age: 76 Year
  Sex: Male
  Weight: 82 kg

DRUGS (7)
  1. SIMVASTATIN. [Suspect]
     Active Substance: SIMVASTATIN
     Indication: HYPERCHOLESTEROLAEMIA
     Dosage: 20 MG, QD
     Route: 048
     Dates: end: 201907
  2. LAIF 900 [Concomitant]
     Indication: RESTLESSNESS
  3. SIMVASTATIN. [Suspect]
     Active Substance: SIMVASTATIN
     Indication: STENT PLACEMENT
     Dosage: 30 MG, QD
     Route: 048
     Dates: start: 201907, end: 201910
  4. JODETTEN 200 [Concomitant]
     Indication: THYROID DISORDER
  5. SIMVASTATIN. [Suspect]
     Active Substance: SIMVASTATIN
     Dosage: WENT BACK TO OLD DOSE (DOSE REDUCED)
  6. SIMVASTATIN. [Suspect]
     Active Substance: SIMVASTATIN
  7. THIOCTACID [Concomitant]
     Active Substance: .ALPHA.-LIPOIC ACID
     Indication: POLYNEUROPATHY

REACTIONS (6)
  - Memory impairment [Recovered/Resolved]
  - Bone pain [Recovered/Resolved]
  - Aphasia [Recovered/Resolved]
  - Polyneuropathy [Recovered/Resolved]
  - Sleep disorder [Recovered/Resolved]
  - Myalgia [Recovered/Resolved]

NARRATIVE: CASE EVENT DATE: 201907
